FAERS Safety Report 5006845-1 (Version None)
Quarter: 2006Q2

REPORT INFORMATION
  Report Type: 
  Country: None (occurrence: None)
  Receive Date: 20060516
  Receipt Date: 20060503
  Transmission Date: 20061013
  Serious: Yes (Death, Life-Threatening)
  Sender: FDA-Public Use
  Company Number: 2006P1000294

PATIENT
  Age: 81 Year
  Sex: Female
  Weight: 67 kg

DRUGS (7)
  1. RETEPLASE (RETEPLASE) [Suspect]
     Indication: ACUTE MYOCARDIAL INFARCTION
     Dosage: IV
     Route: 042
     Dates: start: 20060417, end: 20060417
  2. REOPRO [Suspect]
     Indication: ACUTE MYOCARDIAL INFARCTION
     Dosage: IV
     Route: 042
     Dates: start: 20060417
  3. ACETYLSALICYLIC ACID SRT [Concomitant]
  4. NIFEDIPINE [Concomitant]
  5. CLOPIDOGREL [Concomitant]
  6. METROPROLOL [Concomitant]
  7. SIMVASTATIN [Concomitant]

REACTIONS (6)
  - CARDIAC DEATH [None]
  - CARDIAC PROCEDURE COMPLICATION [None]
  - CORONARY ARTERY DISEASE [None]
  - CORONARY ARTERY STENOSIS [None]
  - HAEMODYNAMIC INSTABILITY [None]
  - VENTRICULAR FIBRILLATION [None]
